FAERS Safety Report 8644532 (Version 3)
Quarter: 2012Q4

REPORT INFORMATION
  Report Type: 
  Country: JP (occurrence: JP)
  Receive Date: 20120629
  Receipt Date: 20120830
  Transmission Date: 20130627
  Serious: Yes (Hospitalization)
  Sender: FDA-Public Use
  Company Number: JP-MSD-1206USA04977

PATIENT

DRUGS (6)
  1. GLACTIV [Suspect]
     Indication: TYPE 2 DIABETES MELLITUS
     Dosage: 50 mg, qd
     Route: 048
     Dates: start: 20100119, end: 20111102
  2. AMARYL [Concomitant]
     Dosage: UNK
     Dates: start: 20090224, end: 20111102
  3. MELBIN [Concomitant]
     Dosage: UNK
     Dates: start: 20090513, end: 20111102
  4. ACTOS [Concomitant]
     Dosage: UNK
     Dates: start: 20060404, end: 20111102
  5. MICARDIS [Concomitant]
     Dosage: UNK
     Dates: start: 20110801, end: 20111102
  6. BOFU-TSUSHO-SAN [Concomitant]
     Dosage: UNK
     Dates: start: 20051108, end: 20111102

REACTIONS (1)
  - Gastric cancer [Recovered/Resolved]
